FAERS Safety Report 17808732 (Version 2)
Quarter: 2020Q2

REPORT INFORMATION
  Report Type: Spontaneous
  Country: US (occurrence: US)
  Receive Date: 20200520
  Receipt Date: 20200605
  Transmission Date: 20200714
  Serious: Yes (Hospitalization)
  Sender: FDA-Public Use
  Company Number: US-LEXICON PHARMACEUTICALS, INC-20-1606-00399

PATIENT
  Age: 58 Year
  Sex: Male

DRUGS (15)
  1. BASAGLAR KWIKPEN [Concomitant]
     Active Substance: INSULIN GLARGINE
  2. TRAVOPROST. [Concomitant]
     Active Substance: TRAVOPROST
  3. MIRALAX [Concomitant]
     Active Substance: POLYETHYLENE GLYCOL 3350
  4. ATORVASTATIN [Concomitant]
     Active Substance: ATORVASTATIN
  5. TIMOLOL. [Concomitant]
     Active Substance: TIMOLOL
  6. AFINITOR [Concomitant]
     Active Substance: EVEROLIMUS
  7. ALLOPURINOL. [Concomitant]
     Active Substance: ALLOPURINOL
  8. CENTRUM [Concomitant]
     Active Substance: VITAMINS
  9. TORSEMIDE. [Concomitant]
     Active Substance: TORSEMIDE
  10. XERMELO [Suspect]
     Active Substance: TELOTRISTAT ETHYL
  11. CARVEDILOL. [Concomitant]
     Active Substance: CARVEDILOL
  12. METFORMIN [Concomitant]
     Active Substance: METFORMIN HYDROCHLORIDE
  13. XERMELO [Suspect]
     Active Substance: TELOTRISTAT ETHYL
     Indication: CARCINOID SYNDROME
     Dates: start: 20200417
  14. SPIRONOLACTONE. [Concomitant]
     Active Substance: SPIRONOLACTONE
  15. VITAMIN D3 [Concomitant]
     Active Substance: CHOLECALCIFEROL

REACTIONS (3)
  - Colitis [Recovering/Resolving]
  - Dehydration [Recovering/Resolving]
  - Diarrhoea [Recovering/Resolving]
